FAERS Safety Report 7084575-2 (Version None)
Quarter: 2010Q4

REPORT INFORMATION
  Report Type: 
  Country: None (occurrence: None)
  Receive Date: 20101104
  Receipt Date: 20101027
  Transmission Date: 20110411
  Serious: Yes (Hospitalization, Other)
  Sender: FDA-Public Use
  Company Number: JP-ABBOTT-08P-087-0453501-00

PATIENT
  Sex: Male
  Weight: 51.5 kg

DRUGS (22)
  1. NORVIR [Suspect]
     Indication: HIV INFECTION
     Dosage: 100 MG, DAILY
     Route: 048
     Dates: start: 20070718
  2. ATAZANAVIR [Suspect]
     Indication: HIV INFECTION
     Dosage: 300 MG, DAILY
     Route: 048
     Dates: start: 20070718
  3. EMTRICITABINE W/TENOFOVIR [Suspect]
     Indication: HIV INFECTION
     Route: 048
     Dates: start: 20070718, end: 20090331
  4. EMTRICITABINE W/TENOFOVIR [Suspect]
     Dosage: 1 TABLET EVERY OTHER DAY
     Dates: start: 20090401
  5. FOSCARNATE SODIUM HYDRATE [Suspect]
     Indication: CYTOMEGALOVIRUS INFECTION
     Route: 042
     Dates: start: 20070311
  6. FOSCARNATE SODIUM HYDRATE [Suspect]
     Dosage: 2.4 MG/KG, TWICE DAILY
     Dates: start: 20070626, end: 20070710
  7. AZITHROMYCIN [Suspect]
     Indication: OPPORTUNISTIC INFECTION PROPHYLAXIS
     Route: 048
     Dates: start: 20070207, end: 20070530
  8. AZITHROMYCIN [Suspect]
     Route: 048
     Dates: start: 20070612, end: 20080910
  9. EPZICOM [Suspect]
     Indication: HIV INFECTION
     Route: 048
     Dates: start: 20070606, end: 20070614
  10. EFAVIRENZ [Suspect]
     Indication: HIV INFECTION
     Route: 048
     Dates: start: 20060606, end: 20070614
  11. ITRACONAZOLE [Concomitant]
     Indication: FUNGAL INFECTION
     Route: 048
     Dates: start: 20070612, end: 20090128
  12. ITRACONAZOLE [Concomitant]
     Indication: PROPHYLAXIS
  13. EFAVIRENZ [Concomitant]
     Indication: HIV INFECTION
     Dosage: 600 MG, DAILY
     Route: 048
     Dates: start: 20070606, end: 20070612
  14. ABACAVIR SULFATE/LAMIVUDINE [Concomitant]
     Indication: HIV INFECTION
     Dosage: 1 TABLET, DAILY
     Dates: start: 20070606, end: 20070614
  15. POLARAMINE [Concomitant]
     Indication: DRUG ERUPTION
     Dates: start: 20070612
  16. PREDNISOLONE SODIUM SUCCINATE INJ [Concomitant]
     Indication: PRODUCT USED FOR UNKNOWN INDICATION
     Dosage: 50 MG, DAILY
     Dates: start: 20070615, end: 20070621
  17. PREDNISOLONE SODIUM SUCCINATE INJ [Concomitant]
     Dosage: DECREASED DOSE
     Dates: start: 20070621
  18. MICAFUNGIN SODIUM [Concomitant]
     Indication: PRODUCT USED FOR UNKNOWN INDICATION
     Dates: start: 20070330, end: 20070611
  19. BROTIZOLAM [Concomitant]
     Indication: INSOMNIA
     Dates: start: 20080401
  20. LOPERAMIDE HYDROCHLORIDE [Concomitant]
     Indication: DIARRHOEA
     Dosage: 1MG DAILY
     Dates: start: 20080806
  21. GATIFLOXACIN HYDRATE [Concomitant]
     Indication: PRODUCT USED FOR UNKNOWN INDICATION
     Dosage: A FEW DROPS TWICE DAILY
     Dates: start: 20080818, end: 20080903
  22. BROMFENAC SODIUM HYDRATE [Concomitant]
     Indication: PRODUCT USED FOR UNKNOWN INDICATION
     Dosage: A FEW DROPS TWICE DAILY
     Dates: start: 20080924, end: 20081008

REACTIONS (7)
  - GLAUCOMA [None]
  - HYPOKALAEMIA [None]
  - HYPONATRAEMIA [None]
  - INTRAOCULAR PRESSURE INCREASED [None]
  - RENAL IMPAIRMENT [None]
  - SUTURE RUPTURE [None]
  - UVEITIS [None]
